FAERS Safety Report 8808943 (Version 1)
Quarter: 2012Q4

REPORT INFORMATION
  Report Type: 
  Country: TR (occurrence: TR)
  Receive Date: 20120926
  Receipt Date: 20120926
  Transmission Date: 20130627
  Serious: Yes (Other)
  Sender: FDA-Public Use
  Company Number: TR-ROXANE LABORATORIES, INC.-2012-RO-01900RO

PATIENT
  Age: 7 Year
  Sex: Female

DRUGS (1)
  1. PROPRANOLOL [Suspect]
     Indication: ARRHYTHMIA PROPHYLAXIS

REACTIONS (1)
  - Accelerated idioventricular rhythm [Recovered/Resolved]
